FAERS Safety Report 9729868 (Version 2)
Quarter: 2014Q2

REPORT INFORMATION
  Report Type: Spontaneous
  Country: US (occurrence: US)
  Receive Date: 20131204
  Receipt Date: 20140612
  Transmission Date: 20141212
  Serious: Yes (Hospitalization, Other)
  Sender: FDA-Public Use
  Company Number: US-BAYER-2013-144991

PATIENT
  Age: 31 Year
  Sex: Female
  Weight: 102.95 kg

DRUGS (6)
  1. MIRENA [Suspect]
     Indication: CONTRACEPTION
     Dosage: 20 MCG/24HR, CONT
     Route: 015
     Dates: start: 20100602, end: 20130909
  2. IRON [Concomitant]
  3. POTASSIUM [Concomitant]
  4. CIPRO [Concomitant]
  5. LOESTRIN [Concomitant]
  6. ORTHO-NOVUM 1/35 [ETHINYLESTRADIOL,NORETHISTERONE] [Concomitant]

REACTIONS (10)
  - Uterine perforation [None]
  - Injury [None]
  - Pelvic pain [None]
  - Device dislocation [None]
  - Abdominal pain [None]
  - Vaginal haemorrhage [None]
  - Device difficult to use [None]
  - Genital haemorrhage [None]
  - Depression [None]
  - Insomnia [None]
